FAERS Safety Report 8181622-1 (Version None)
Quarter: 2012Q1

REPORT INFORMATION
  Report Type: 
  Country: None (occurrence: None)
  Receive Date: 20120301
  Receipt Date: 20120301
  Transmission Date: 20120608
  Serious: No
  Sender: FDA-Public Use
  Company Number: None

PATIENT
  Sex: Female
  Weight: 56.6996 kg

DRUGS (1)
  1. X-PECT PE (SAMPLE) WHITE OVAL PILL [Suspect]
     Indication: NASOPHARYNGITIS
     Dosage: 1 PILL
     Dates: start: 20071101

REACTIONS (4)
  - EPISTAXIS [None]
  - CHRONIC SINUSITIS [None]
  - EAR PAIN [None]
  - VERTIGO [None]
